FAERS Safety Report 26044554 (Version 1)
Quarter: 2025Q4

REPORT INFORMATION
  Report Type: Spontaneous
  Country: US (occurrence: US)
  Receive Date: 20251114
  Receipt Date: 20251114
  Transmission Date: 20260117
  Serious: No
  Sender: ALVOGEN
  Company Number: US-ALVOGEN-2024095727

PATIENT
  Sex: Female

DRUGS (1)
  1. TERIPARATIDE [Suspect]
     Active Substance: TERIPARATIDE
     Indication: Product used for unknown indication
     Dates: start: 202409

REACTIONS (4)
  - Lymphadenopathy [Unknown]
  - Oral pain [Unknown]
  - Pain in jaw [Unknown]
  - Gingival pain [Unknown]

NARRATIVE: CASE EVENT DATE: 20240101
